FAERS Safety Report 13858473 (Version 1)
Quarter: 2017Q3

REPORT INFORMATION
  Report Type: Spontaneous
  Country: FR (occurrence: FR)
  Receive Date: 20170811
  Receipt Date: 20170811
  Transmission Date: 20171127
  Serious: Yes (Life-Threatening, Hospitalization)
  Sender: FDA-Public Use
  Company Number: FR-PURDUE-GBR-2017-0047934

PATIENT
  Age: 14 Year
  Sex: Female

DRUGS (1)
  1. OXYCONTIN [Suspect]
     Active Substance: OXYCODONE HYDROCHLORIDE
     Indication: TOXICITY TO VARIOUS AGENTS
     Dosage: 12 DF, TOTAL BETWEEN MIDNIGHT AND 5 AM, STRENGTH 10MG
     Route: 048
     Dates: start: 20170518

REACTIONS (7)
  - Cyanosis [Recovered/Resolved]
  - Vomiting [Recovered/Resolved]
  - Bradycardia [Recovered/Resolved]
  - Suicide attempt [Recovered/Resolved]
  - Coma [Recovered/Resolved]
  - Bradypnoea [Recovered/Resolved]
  - Intentional overdose [Recovered/Resolved]

NARRATIVE: CASE EVENT DATE: 20170519
